FAERS Safety Report 25434799 (Version 1)
Quarter: 2025Q2

REPORT INFORMATION
  Report Type: Spontaneous
  Country: US (occurrence: None)
  Receive Date: 20250613
  Receipt Date: 20250613
  Transmission Date: 20250717
  Serious: Yes (Hospitalization)
  Sender: FDA-CTU
  Company Number: None

PATIENT
  Sex: Female

DRUGS (11)
  1. LENALIDOMIDE [Suspect]
     Active Substance: LENALIDOMIDE
     Indication: B-cell lymphoma
     Route: 048
     Dates: start: 20250423
  2. ALLOPURINOL [Concomitant]
     Active Substance: ALLOPURINOL
  3. ASPIRIN CHW 81MG [Concomitant]
  4. CARVEDILOL [Concomitant]
     Active Substance: CARVEDILOL
  5. CHOLESTYRAM POW [Concomitant]
  6. IRBESARTAN [Concomitant]
     Active Substance: IRBESARTAN
  7. LENALIDOMIDE [Concomitant]
     Active Substance: LENALIDOMIDE
  8. LEVOTHYROXINE [Concomitant]
     Active Substance: LEVOTHYROXINE
  9. METOPROLOL TARTRATE [Concomitant]
     Active Substance: METOPROLOL TARTRATE
  10. NIFEDIPINE [Concomitant]
     Active Substance: NIFEDIPINE
  11. PREDNISONE [Concomitant]
     Active Substance: PREDNISONE

REACTIONS (2)
  - Intestinal obstruction [None]
  - Intentional dose omission [None]
